FAERS Safety Report 8889767 (Version 1)
Quarter: 2012Q4

REPORT INFORMATION
  Report Type: Report from Study
  Country: DK (occurrence: DK)
  Receive Date: 20121107
  Receipt Date: 20121107
  Transmission Date: 20130627
  Serious: Yes (Other)
  Sender: FDA-Public Use
  Company Number: DK-SANOFI-AVENTIS-2012SA079920

PATIENT
  Age: 54 Year

DRUGS (11)
  1. OXALIPLATIN [Suspect]
     Indication: SQUAMOUS CELL CARCINOMA OF ESOPHAGUS
     Dosage: on days 1, 78 and 99.
     Route: 042
  2. OXALIPLATIN [Suspect]
     Indication: SQUAMOUS CELL CARCINOMA OF ESOPHAGUS
     Dosage: during radiotherapy
     Route: 065
  3. TEGAFUR\URACIL [Suspect]
     Indication: SQUAMOUS CELL CARCINOMA OF ESOPHAGUS
     Dosage: on days 1-14 and 78-91 every 12 hours, twice daily
     Route: 048
  4. TEGAFUR\URACIL [Suspect]
     Indication: SQUAMOUS CELL CARCINOMA OF ESOPHAGUS
     Dosage: administered from monday to friday, during radiotherapy
     Route: 065
  5. CETUXIMAB [Suspect]
     Indication: SQUAMOUS CELL CARCINOMA OF ESOPHAGUS
     Dosage: administered before radiotherapy on day 15
     Route: 042
  6. CETUXIMAB [Suspect]
     Indication: SQUAMOUS CELL CARCINOMA OF ESOPHAGUS
     Dosage: administered for the duration of radiotherapy
     Route: 042
  7. THERAPEUTIC RADIOPHARMACEUTICALS [Suspect]
     Indication: SQUAMOUS CELL CARCINOMA OF ESOPHAGUS
     Dosage: administered as 59.4 Gy in 33 fractions of 1.8 Gy on days 22-66, five fractions/week
     Route: 065
  8. CALCIUM LEVOFOLINATE [Concomitant]
     Dosage: 15 mg twice daily, every 12 hours, on days 1-14, 78-91 and 99-112
     Route: 048
  9. CALCIUM LEVOFOLINATE [Concomitant]
     Route: 048
  10. CLEMASTINE [Concomitant]
     Dosage: was administered 1 h prior to cetuximab infusion
     Route: 042
  11. ANTIEMETICS AND ANTINAUSEANTS [Concomitant]

REACTIONS (1)
  - tracheo-esophageal fistula [Unknown]
